FAERS Safety Report 9146115 (Version 1)
Quarter: 2013Q1

REPORT INFORMATION
  Report Type: Spontaneous
  Country: US (occurrence: None)
  Receive Date: 20130227
  Receipt Date: 20130227
  Transmission Date: 20140127
  Serious: Yes (Hospitalization)
  Sender: FDA-Public Use
  Company Number: None

PATIENT
  Sex: Male
  Weight: 82.92 kg

DRUGS (3)
  1. RITUXIMAB [Suspect]
     Dosage: 1000 MG X 1 IV
     Route: 042
     Dates: start: 20130129
  2. RITUXIMAB [Suspect]
     Dosage: 1000 MG X 1 IV
     Route: 042
     Dates: start: 20130129
  3. LIPITOR [Concomitant]

REACTIONS (1)
  - Pneumocystis jirovecii pneumonia [None]
